FAERS Safety Report 10532739 (Version 1)
Quarter: 2014Q4

REPORT INFORMATION
  Report Type: Spontaneous
  Country: IN (occurrence: IN)
  Receive Date: 20141021
  Receipt Date: 20141021
  Transmission Date: 20150529
  Serious: Yes (Other)
  Sender: FDA-Public Use
  Company Number: IN-MYLANLABS-2014M1007706

PATIENT

DRUGS (4)
  1. SODIUM VALPROATE [Concomitant]
     Active Substance: VALPROATE SODIUM
     Route: 065
  2. QUETIAPINE [Suspect]
     Active Substance: QUETIAPINE
     Indication: DRUG ABUSE
     Dosage: 300MG DAILY, THEN 400-600 MG/DAY
     Route: 048
  3. ZOLPIDEM [Concomitant]
     Active Substance: ZOLPIDEM\ZOLPIDEM TARTRATE
     Indication: INITIAL INSOMNIA
     Route: 065
  4. QUETIAPINE [Suspect]
     Active Substance: QUETIAPINE
     Indication: OFF LABEL USE
     Dosage: 400-600 MG/DAY
     Route: 048

REACTIONS (8)
  - Drug dependence [Unknown]
  - Initial insomnia [None]
  - Self-medication [None]
  - Memory impairment [None]
  - Drug withdrawal syndrome [Unknown]
  - Irritability [None]
  - Drug abuse [Unknown]
  - Sleep disorder [None]
